FAERS Safety Report 10029183 (Version 1)
Quarter: 2014Q1

REPORT INFORMATION
  Report Type: Spontaneous
  Country: US (occurrence: US)
  Receive Date: 20140321
  Receipt Date: 20140321
  Transmission Date: 20141002
  Serious: Yes (Other)
  Sender: FDA-Public Use
  Company Number: US-RB-064711-14

PATIENT
  Age: 51 Year
  Sex: Female

DRUGS (3)
  1. SUBOXONE FILM [Suspect]
     Indication: DRUG DEPENDENCE
     Dosage: SUBOXONE FILM
     Route: 060
     Dates: start: 2013
  2. XANAX [Suspect]
     Indication: ANXIETY
     Dosage: HAD BEEN TAPERED FROM 4MG DAILY TO 0.5MG DAILY OVER PAST THREE WEEKS
     Route: 048
     Dates: start: 1989, end: 20140310
  3. XANAX [Suspect]
     Indication: PANIC ATTACK
     Dosage: HAD BEEN TAPERED FROM 4MG DAILY TO 0.5MG DAILY OVER PAST THREE WEEKS
     Route: 048
     Dates: start: 1989, end: 20140310

REACTIONS (4)
  - Insomnia [Not Recovered/Not Resolved]
  - Feeling abnormal [Not Recovered/Not Resolved]
  - Disturbance in attention [Not Recovered/Not Resolved]
  - Convulsion [Recovered/Resolved]
